FAERS Safety Report 11667144 (Version 1)
Quarter: 2015Q4

REPORT INFORMATION
  Report Type: Report from Study
  Country: GB (occurrence: GB)
  Receive Date: 20151027
  Receipt Date: 20151027
  Transmission Date: 20160304
  Serious: Yes (Death)
  Sender: FDA-Public Use
  Company Number: GB-JNJFOC-20151018206

PATIENT
  Sex: Male
  Weight: 89 kg

DRUGS (2)
  1. LERCANIDIPINE [Concomitant]
     Active Substance: LERCANIDIPINE
     Route: 065
     Dates: start: 20130722
  2. STELARA [Suspect]
     Active Substance: USTEKINUMAB
     Indication: PSORIASIS
     Route: 058
     Dates: start: 20130712, end: 20130812

REACTIONS (3)
  - Congestive cardiomyopathy [Fatal]
  - Brain injury [Fatal]
  - Cardiac arrest [Fatal]
